FAERS Safety Report 7996290-9 (Version None)
Quarter: 2011Q4

REPORT INFORMATION
  Report Type: 
  Country: None (occurrence: None)
  Receive Date: 20111220
  Receipt Date: 20111214
  Transmission Date: 20120403
  Serious: Yes (Hospitalization)
  Sender: FDA-Public Use
  Company Number: CA-AMGEN-KDL424193

PATIENT
  Age: 45 Year
  Sex: Male

DRUGS (5)
  1. ENBREL [Suspect]
     Indication: RHEUMATOID ARTHRITIS
     Dosage: UNK
     Dates: start: 20080331, end: 20100501
  2. PREDNISONE TAB [Concomitant]
  3. ARTHROTEC [Concomitant]
  4. VASOTEC [Concomitant]
  5. ENBREL [Suspect]
     Dosage: 50 MG, QWK
     Route: 058
     Dates: start: 20080310, end: 20100501

REACTIONS (3)
  - ABASIA [None]
  - RECTAL ABSCESS [None]
  - ANAL INFECTION [None]
